FAERS Safety Report 9157885 (Version 1)
Quarter: 2013Q1

REPORT INFORMATION
  Report Type: Report from Study
  Country: US (occurrence: US)
  Receive Date: 20130312
  Receipt Date: 20130312
  Transmission Date: 20140127
  Serious: Yes (Other)
  Sender: FDA-Public Use
  Company Number: US-B.I. PHARMACEUTICALS,INC./RIDGEFIELD-2013-BI-06274GD

PATIENT
  Sex: 0

DRUGS (3)
  1. BISACODYL [Suspect]
     Indication: COLONOSCOPY
     Dosage: 10 MG
     Route: 048
  2. MACROGOL [Suspect]
     Indication: COLONOSCOPY
     Route: 048
  3. GATORADE [Suspect]
     Indication: COLONOSCOPY
     Route: 048

REACTIONS (1)
  - Acute myocardial infarction [Unknown]
